FAERS Safety Report 7556390-4 (Version None)
Quarter: 2011Q2

REPORT INFORMATION
  Report Type: 
  Country: None (occurrence: None)
  Receive Date: 20110615
  Receipt Date: 20110615
  Transmission Date: 20111010
  Serious: Yes (Other)
  Sender: FDA-Public Use
  Company Number: None

PATIENT
  Age: 41 Year
  Sex: Female
  Weight: 56.246 kg

DRUGS (4)
  1. BUPROPION HCL [Concomitant]
  2. MINOCYCLINE HCL [Concomitant]
  3. CYMBALTA [Suspect]
     Indication: ANXIETY
     Dosage: 30MG ONCE DAILY PO
     Route: 048
     Dates: start: 20110609, end: 20110609
  4. CYMBALTA [Suspect]
     Indication: DEPRESSION
     Dosage: 30MG ONCE DAILY PO
     Route: 048
     Dates: start: 20110609, end: 20110609

REACTIONS (3)
  - MALAISE [None]
  - TINNITUS [None]
  - HUNGER [None]
